FAERS Safety Report 19478201 (Version 1)
Quarter: 2021Q2

REPORT INFORMATION
  Report Type: Spontaneous
  Country: US (occurrence: US)
  Receive Date: 20210630
  Receipt Date: 20210630
  Transmission Date: 20210717
  Serious: Yes (Other)
  Sender: FDA-Public Use
  Company Number: US-PFIZER INC-2021713182

PATIENT
  Sex: Female

DRUGS (1)
  1. PREMPHASE [Suspect]
     Active Substance: ESTROGENS, CONJUGATED\MEDROXYPROGESTERONE ACETATE

REACTIONS (8)
  - Dyspnoea [Unknown]
  - Eating disorder [Unknown]
  - Vomiting [Unknown]
  - Anxiety [Unknown]
  - Dizziness [Unknown]
  - Insomnia [Unknown]
  - Hypertension [Unknown]
  - Drug dependence [Unknown]
